FAERS Safety Report 18753496 (Version 47)
Quarter: 2024Q3

REPORT INFORMATION
  Report Type: Spontaneous
  Country: CA (occurrence: CA)
  Receive Date: 20210118
  Receipt Date: 20240823
  Transmission Date: 20241017
  Serious: Yes (Hospitalization, Disabling, Congenital Anomaly, Other)
  Sender: BAUSCH AND LOMB
  Company Number: CA-BAUSCH-BL-2021-001496

PATIENT
  Age: 80 Year
  Sex: Male
  Weight: 89 kg

DRUGS (170)
  1. MESALAMINE [Suspect]
     Active Substance: MESALAMINE
     Indication: Product used for unknown indication
     Dosage: NOT SPECIFIED
     Route: 065
  2. BUDESONIDE [Suspect]
     Active Substance: BUDESONIDE
     Indication: Asthma
     Route: 065
  3. ALBUTEROL [Suspect]
     Active Substance: ALBUTEROL
     Indication: Asthma
     Dosage: METERED-DOSE (AEROSOL) SALBUTAMOL SULFATE
     Route: 065
  4. ALBUTEROL [Suspect]
     Active Substance: ALBUTEROL
     Indication: Prophylaxis
     Dosage: SALBUTAMOL SULFATE
     Route: 065
  5. ALBUTEROL [Suspect]
     Active Substance: ALBUTEROL
     Dosage: SALBUTAMOL SULFATE
     Route: 055
  6. ALBUTEROL [Suspect]
     Active Substance: ALBUTEROL
     Dosage: SALBUTAMOL SULFATE
     Route: 065
  7. ALBUTEROL [Suspect]
     Active Substance: ALBUTEROL
     Dosage: 2, UNK, 100 MICROGRAM SALBUTAMOL SULFATE
     Route: 065
  8. ALBUTEROL [Suspect]
     Active Substance: ALBUTEROL
     Dosage: SALBUTAMOL
     Route: 065
  9. ALBUTEROL [Suspect]
     Active Substance: ALBUTEROL
     Dosage: SALBUTAMOL SULFATE
     Route: 055
  10. ALBUTEROL [Suspect]
     Active Substance: ALBUTEROL
     Indication: Asthma prophylaxis
     Route: 065
  11. ALBUTEROL SULFATE [Suspect]
     Active Substance: ALBUTEROL SULFATE
     Indication: Asthma prophylaxis
     Dosage: METERED-DOSE (AEROSOL)
     Route: 065
  12. ALBUTEROL SULFATE [Suspect]
     Active Substance: ALBUTEROL SULFATE
     Indication: Asthma
     Route: 055
  13. RAMIPRIL [Suspect]
     Active Substance: RAMIPRIL
     Indication: Asthma
     Route: 048
  14. RAMIPRIL [Suspect]
     Active Substance: RAMIPRIL
     Indication: Prophylaxis
     Route: 048
  15. RAMIPRIL [Suspect]
     Active Substance: RAMIPRIL
     Route: 065
  16. ACETYLCYSTEINE [Suspect]
     Active Substance: ACETYLCYSTEINE
     Indication: Product used for unknown indication
     Route: 065
  17. ACETYLCYSTEINE [Suspect]
     Active Substance: ACETYLCYSTEINE
     Route: 055
  18. ACETYLCYSTEINE [Suspect]
     Active Substance: ACETYLCYSTEINE
     Route: 065
  19. ALVESCO [Suspect]
     Active Substance: CICLESONIDE
     Indication: Asthma
     Dosage: AEROSOL METERED DOSE
     Route: 065
  20. ALVESCO [Suspect]
     Active Substance: CICLESONIDE
     Dosage: MDI-AEROSOL
     Route: 065
  21. ALVESCO [Suspect]
     Active Substance: CICLESONIDE
     Dosage: PRESSURISED INHALATION, SOLUTION
     Route: 055
  22. ALVESCO [Suspect]
     Active Substance: CICLESONIDE
     Route: 065
  23. ALVESCO [Suspect]
     Active Substance: CICLESONIDE
     Dosage: AEROSOL, METERED DOSE
     Route: 055
  24. ALVESCO [Suspect]
     Active Substance: CICLESONIDE
     Route: 065
  25. ALVESCO [Suspect]
     Active Substance: CICLESONIDE
     Dosage: AEROSOL, METERED DOSE
     Route: 065
  26. ASPIRIN [Suspect]
     Active Substance: ASPIRIN
     Indication: Product used for unknown indication
     Dosage: NOT SPECIFIED
     Route: 065
  27. AZITHROMYCIN [Suspect]
     Active Substance: AZITHROMYCIN
     Indication: Product used for unknown indication
     Dosage: AZITHROMYCIN
     Route: 065
  28. AZITHROMYCIN [Suspect]
     Active Substance: AZITHROMYCIN
     Dosage: AZITHROMYCIN DIHYDRATE
     Route: 065
  29. ACLIDINIUM BROMIDE\FORMOTEROL FUMARATE [Suspect]
     Active Substance: ACLIDINIUM BROMIDE\FORMOTEROL FUMARATE
     Indication: Product used for unknown indication
     Dosage: FOR ORAL INHALATION. 1 INHALER WITH 30 ACTUATIONS AND 1 INHALER WITH 60 ACTUATIONS, METERED DOSE
     Route: 055
  30. LEVOFLOXACIN [Suspect]
     Active Substance: LEVOFLOXACIN
     Indication: Prophylaxis
     Dosage: LEVOFLOXACIN
     Route: 065
  31. LEVOFLOXACIN [Suspect]
     Active Substance: LEVOFLOXACIN
     Dosage: LEVOFLOXACIN HEMIHYDRATE
     Route: 065
  32. LEVOFLOXACIN [Suspect]
     Active Substance: LEVOFLOXACIN
     Dosage: LEVOFLOXACIN HEMIHYDRATE
     Route: 065
  33. LEVOFLOXACIN [Suspect]
     Active Substance: LEVOFLOXACIN
     Dosage: LEVOFLOXACIN HEMIHYDRATE
     Route: 065
  34. LYRICA [Suspect]
     Active Substance: PREGABALIN
     Indication: Product used for unknown indication
     Route: 065
  35. LYRICA [Suspect]
     Active Substance: PREGABALIN
     Route: 065
  36. LYRICA [Suspect]
     Active Substance: PREGABALIN
     Route: 055
  37. MELATONIN [Suspect]
     Active Substance: MELATONIN
     Indication: Product used for unknown indication
     Route: 065
  38. MELATONIN [Suspect]
     Active Substance: MELATONIN
     Route: 065
  39. NAPROXEN [Suspect]
     Active Substance: NAPROXEN
     Indication: Product used for unknown indication
     Dosage: NAPROXEN
     Route: 065
  40. NAPROXEN [Suspect]
     Active Substance: NAPROXEN
     Dosage: NOT SPECIFIED
     Route: 065
  41. NAPROXEN [Suspect]
     Active Substance: NAPROXEN
     Dosage: NAPROXEN SODIUM
     Route: 065
  42. PANTOPRAZOLE [Suspect]
     Active Substance: PANTOPRAZOLE
     Indication: Product used for unknown indication
     Dosage: PANTOPRAZOLE
     Route: 065
  43. PANTOPRAZOLE [Suspect]
     Active Substance: PANTOPRAZOLE
     Dosage: PANTOPRAZOLE SODIUM
     Route: 065
  44. PANTOPRAZOLE [Suspect]
     Active Substance: PANTOPRAZOLE
     Dosage: PANTOPRAZOLE SODIUM ANHYDROUS
     Route: 065
  45. PANTOPRAZOLE [Suspect]
     Active Substance: PANTOPRAZOLE
     Dosage: PANTOPRAZOLE SODIUM SESQUIHYDRATE
     Route: 065
  46. PANTOPRAZOLE [Suspect]
     Active Substance: PANTOPRAZOLE
     Dosage: PANTOPRAZOLE SODIUM MONOHYDRATE
     Route: 065
  47. BUDESONIDE\FORMOTEROL FUMARATE [Suspect]
     Active Substance: BUDESONIDE\FORMOTEROL FUMARATE
     Indication: Asthma
     Dosage: 2 EVERY 1 DAYS
     Route: 065
  48. BUDESONIDE\FORMOTEROL FUMARATE [Suspect]
     Active Substance: BUDESONIDE\FORMOTEROL FUMARATE
     Route: 065
  49. BUDESONIDE\FORMOTEROL FUMARATE [Suspect]
     Active Substance: BUDESONIDE\FORMOTEROL FUMARATE
     Route: 065
  50. BUDESONIDE\FORMOTEROL FUMARATE [Suspect]
     Active Substance: BUDESONIDE\FORMOTEROL FUMARATE
     Dosage: 1 EVERY 1 DAYS
     Route: 055
  51. BUDESONIDE\FORMOTEROL FUMARATE [Suspect]
     Active Substance: BUDESONIDE\FORMOTEROL FUMARATE
     Route: 055
  52. BUDESONIDE\FORMOTEROL FUMARATE [Suspect]
     Active Substance: BUDESONIDE\FORMOTEROL FUMARATE
     Route: 055
  53. BUDESONIDE\FORMOTEROL FUMARATE [Suspect]
     Active Substance: BUDESONIDE\FORMOTEROL FUMARATE
     Route: 055
  54. BUDESONIDE\FORMOTEROL FUMARATE [Suspect]
     Active Substance: BUDESONIDE\FORMOTEROL FUMARATE
     Route: 055
  55. BUDESONIDE\FORMOTEROL FUMARATE [Suspect]
     Active Substance: BUDESONIDE\FORMOTEROL FUMARATE
     Route: 065
  56. BUDESONIDE\FORMOTEROL FUMARATE [Suspect]
     Active Substance: BUDESONIDE\FORMOTEROL FUMARATE
     Route: 065
  57. BUDESONIDE\FORMOTEROL FUMARATE [Suspect]
     Active Substance: BUDESONIDE\FORMOTEROL FUMARATE
     Dosage: BUDESONIDE/FORMOTEROL
     Route: 065
  58. BUDESONIDE\FORMOTEROL FUMARATE [Suspect]
     Active Substance: BUDESONIDE\FORMOTEROL FUMARATE
     Dosage: CYCLICAL
     Route: 055
  59. PREDNISONE [Suspect]
     Active Substance: PREDNISONE
     Indication: Asthma
     Dosage: NOT SPECIFIED
     Route: 065
  60. PREGABALIN [Suspect]
     Active Substance: PREGABALIN
     Indication: Product used for unknown indication
     Route: 065
  61. PREGABALIN [Suspect]
     Active Substance: PREGABALIN
     Route: 065
  62. SPIRIVA [Suspect]
     Active Substance: TIOTROPIUM BROMIDE MONOHYDRATE
     Indication: Asthma
     Route: 065
  63. SPIRIVA [Suspect]
     Active Substance: TIOTROPIUM BROMIDE MONOHYDRATE
     Dosage: DAILY
     Route: 065
  64. SPIRIVA [Suspect]
     Active Substance: TIOTROPIUM BROMIDE MONOHYDRATE
     Route: 065
  65. SPIRIVA [Suspect]
     Active Substance: TIOTROPIUM BROMIDE MONOHYDRATE
     Route: 065
  66. SPIRIVA [Suspect]
     Active Substance: TIOTROPIUM BROMIDE MONOHYDRATE
     Route: 065
  67. SPIRIVA [Suspect]
     Active Substance: TIOTROPIUM BROMIDE MONOHYDRATE
     Route: 065
  68. SPIRIVA [Suspect]
     Active Substance: TIOTROPIUM BROMIDE MONOHYDRATE
     Route: 065
  69. SYMBICORT [Suspect]
     Active Substance: BUDESONIDE\FORMOTEROL FUMARATE DIHYDRATE
     Indication: Asthma
     Route: 065
  70. SYMBICORT [Suspect]
     Active Substance: BUDESONIDE\FORMOTEROL FUMARATE DIHYDRATE
     Route: 065
  71. SYMBICORT [Suspect]
     Active Substance: BUDESONIDE\FORMOTEROL FUMARATE DIHYDRATE
     Route: 065
  72. SYMBICORT [Suspect]
     Active Substance: BUDESONIDE\FORMOTEROL FUMARATE DIHYDRATE
     Route: 065
  73. SYMBICORT [Suspect]
     Active Substance: BUDESONIDE\FORMOTEROL FUMARATE DIHYDRATE
     Route: 065
  74. SYMBICORT [Suspect]
     Active Substance: BUDESONIDE\FORMOTEROL FUMARATE DIHYDRATE
     Route: 055
  75. SYMBICORT [Suspect]
     Active Substance: BUDESONIDE\FORMOTEROL FUMARATE DIHYDRATE
     Route: 055
  76. SYMBICORT [Suspect]
     Active Substance: BUDESONIDE\FORMOTEROL FUMARATE DIHYDRATE
     Route: 055
  77. SYMBICORT [Suspect]
     Active Substance: BUDESONIDE\FORMOTEROL FUMARATE DIHYDRATE
     Route: 055
  78. SYMBICORT [Suspect]
     Active Substance: BUDESONIDE\FORMOTEROL FUMARATE DIHYDRATE
     Route: 055
  79. SYMBICORT [Suspect]
     Active Substance: BUDESONIDE\FORMOTEROL FUMARATE DIHYDRATE
     Route: 055
  80. SYMBICORT [Suspect]
     Active Substance: BUDESONIDE\FORMOTEROL FUMARATE DIHYDRATE
     Route: 065
  81. SYMBICORT [Suspect]
     Active Substance: BUDESONIDE\FORMOTEROL FUMARATE DIHYDRATE
     Route: 065
  82. SYMBICORT [Suspect]
     Active Substance: BUDESONIDE\FORMOTEROL FUMARATE DIHYDRATE
     Route: 065
  83. SYMBICORT [Suspect]
     Active Substance: BUDESONIDE\FORMOTEROL FUMARATE DIHYDRATE
     Route: 065
  84. SYMBICORT [Suspect]
     Active Substance: BUDESONIDE\FORMOTEROL FUMARATE DIHYDRATE
     Route: 065
  85. SYMBICORT [Suspect]
     Active Substance: BUDESONIDE\FORMOTEROL FUMARATE DIHYDRATE
     Dosage: CYCLICAL
     Route: 065
  86. FLOMAX [Suspect]
     Active Substance: TAMSULOSIN HYDROCHLORIDE
     Indication: Product used for unknown indication
     Route: 065
  87. FLOMAX [Suspect]
     Active Substance: TAMSULOSIN HYDROCHLORIDE
     Route: 065
  88. FLOMAX [Suspect]
     Active Substance: TAMSULOSIN HYDROCHLORIDE
     Route: 065
  89. ASACOL [Suspect]
     Active Substance: MESALAMINE
     Indication: Product used for unknown indication
     Dosage: TABLET (ENTERICCOATED)
     Route: 065
  90. ASACOL [Suspect]
     Active Substance: MESALAMINE
     Dosage: COATED TABLET
     Route: 065
  91. ROSUVASTATIN [Suspect]
     Active Substance: ROSUVASTATIN\ROSUVASTATIN CALCIUM
     Indication: Asthma
     Dosage: ROSUVASTATIN
     Route: 048
  92. ROSUVASTATIN [Suspect]
     Active Substance: ROSUVASTATIN\ROSUVASTATIN CALCIUM
     Dosage: ROSUVASTATIN CALCIUM
     Route: 065
  93. ROSUVASTATIN [Suspect]
     Active Substance: ROSUVASTATIN\ROSUVASTATIN CALCIUM
     Dosage: ROSUVASTATIN CALCIUM
     Route: 065
  94. ROSUVASTATIN [Suspect]
     Active Substance: ROSUVASTATIN\ROSUVASTATIN CALCIUM
     Dosage: ROSUVASTATIN CALCIUM
     Route: 048
  95. ROSUVASTATIN [Suspect]
     Active Substance: ROSUVASTATIN\ROSUVASTATIN CALCIUM
     Dosage: ROSUVASTATIN CALCIUM
     Route: 048
  96. ROSUVASTATIN [Suspect]
     Active Substance: ROSUVASTATIN\ROSUVASTATIN CALCIUM
     Dosage: ROSUVASTATIN CALCIUM
     Route: 048
  97. ROSUVASTATIN [Suspect]
     Active Substance: ROSUVASTATIN\ROSUVASTATIN CALCIUM
     Dosage: ROSUVASTATIN CALCIUM
     Route: 065
  98. ROSUVASTATIN [Suspect]
     Active Substance: ROSUVASTATIN\ROSUVASTATIN CALCIUM
     Route: 048
  99. ROSUVASTATIN [Suspect]
     Active Substance: ROSUVASTATIN\ROSUVASTATIN CALCIUM
     Route: 065
  100. ROSUVASTATIN [Suspect]
     Active Substance: ROSUVASTATIN\ROSUVASTATIN CALCIUM
     Dosage: CYCLICAL
     Route: 048
  101. INFLUENZA VIRUS VACCINE [Suspect]
     Active Substance: INFLUENZA VIRUS VACCINE
     Indication: Prophylaxis
     Dosage: INFLUENZA  VACCINE
     Route: 065
  102. INFLUENZA VIRUS VACCINE [Suspect]
     Active Substance: INFLUENZA VIRUS VACCINE
     Indication: Immunisation
     Dosage: INFLUENZA VACCINE
     Route: 051
  103. INFLUENZA VIRUS VACCINE [Suspect]
     Active Substance: INFLUENZA VIRUS VACCINE
     Dosage: INFLUENZA VIRUS VACCINE, INTRA-NASAL
     Route: 065
  104. INFLUENZA VIRUS VACCINE [Suspect]
     Active Substance: INFLUENZA VIRUS VACCINE
     Dosage: INFLUENZA VIRUS VACCINE
     Route: 065
  105. DOXYCYCLINE [Suspect]
     Active Substance: DOXYCYCLINE\DOXYCYCLINE HYCLATE
     Indication: Product used for unknown indication
     Dosage: DOXYCYCLINE
     Route: 065
  106. DOXYCYCLINE [Suspect]
     Active Substance: DOXYCYCLINE\DOXYCYCLINE HYCLATE
     Dosage: DOXYCYCLINE HYCLATE
     Route: 065
  107. DOXYCYCLINE [Suspect]
     Active Substance: DOXYCYCLINE\DOXYCYCLINE HYCLATE
     Dosage: DOXYCYCLINE HYCLATE
     Route: 055
  108. TIOTROPIUM BROMIDE MONOHYDRATE [Suspect]
     Active Substance: TIOTROPIUM BROMIDE MONOHYDRATE
     Indication: Asthma
     Route: 065
  109. TIOTROPIUM BROMIDE MONOHYDRATE [Suspect]
     Active Substance: TIOTROPIUM BROMIDE MONOHYDRATE
     Route: 065
  110. TIOTROPIUM BROMIDE MONOHYDRATE [Suspect]
     Active Substance: TIOTROPIUM BROMIDE MONOHYDRATE
     Route: 065
  111. TIOTROPIUM BROMIDE MONOHYDRATE [Suspect]
     Active Substance: TIOTROPIUM BROMIDE MONOHYDRATE
     Route: 065
  112. TIOTROPIUM BROMIDE MONOHYDRATE [Suspect]
     Active Substance: TIOTROPIUM BROMIDE MONOHYDRATE
     Route: 065
  113. TIOTROPIUM BROMIDE MONOHYDRATE [Suspect]
     Active Substance: TIOTROPIUM BROMIDE MONOHYDRATE
     Route: 065
  114. TIOTROPIUM BROMIDE MONOHYDRATE [Suspect]
     Active Substance: TIOTROPIUM BROMIDE MONOHYDRATE
     Route: 065
  115. TIOTROPIUM BROMIDE MONOHYDRATE [Suspect]
     Active Substance: TIOTROPIUM BROMIDE MONOHYDRATE
     Route: 065
  116. TIOTROPIUM BROMIDE MONOHYDRATE [Suspect]
     Active Substance: TIOTROPIUM BROMIDE MONOHYDRATE
     Dosage: TIOTROPIUM BROMIDE?CYCLICAL
     Route: 065
  117. PNEUMOCOCCAL VACCINE POLYVALENT NOS [Suspect]
     Active Substance: PNEUMOCOCCAL VACCINE, POLYVALENT
     Indication: Prophylaxis
     Route: 065
  118. PNEUMOCOCCAL VACCINE POLYVALENT NOS [Suspect]
     Active Substance: PNEUMOCOCCAL VACCINE, POLYVALENT
     Indication: Immunisation
     Route: 065
  119. INFLUENZA VIRUS VACCINE [Suspect]
     Active Substance: INFLUENZA VIRUS VACCINE
     Indication: Product used for unknown indication
     Route: 065
  120. CICLESONIDE [Suspect]
     Active Substance: CICLESONIDE
     Indication: Asthma
     Route: 055
  121. CICLESONIDE [Suspect]
     Active Substance: CICLESONIDE
     Route: 055
  122. CICLESONIDE [Suspect]
     Active Substance: CICLESONIDE
     Route: 065
  123. ACLIDINIUM BROMIDE [Suspect]
     Active Substance: ACLIDINIUM BROMIDE
     Indication: Asthma
     Dosage: ACLIDINIUM
     Route: 065
  124. ACLIDINIUM BROMIDE [Suspect]
     Active Substance: ACLIDINIUM BROMIDE
     Dosage: ACLIDINIUM BROMIDE
     Route: 065
  125. ACLIDINIUM BROMIDE [Suspect]
     Active Substance: ACLIDINIUM BROMIDE
     Dosage: ACLIDINIUM BROMIDE
     Route: 055
  126. ACLIDINIUM BROMIDE [Suspect]
     Active Substance: ACLIDINIUM BROMIDE
     Dosage: ACLIDINIUM
     Route: 065
  127. ACLIDINIUM BROMIDE [Suspect]
     Active Substance: ACLIDINIUM BROMIDE
     Dosage: ACLIDINIUM BROMIDE
     Route: 055
  128. TADALAFIL\TAMSULOSIN HYDROCHLORIDE [Suspect]
     Active Substance: TADALAFIL\TAMSULOSIN HYDROCHLORIDE
     Indication: Product used for unknown indication
     Route: 065
  129. FLUMIST QUADRIVALENT [Suspect]
     Active Substance: INFLUENZA A VIRUS A/CALIFORNIA/7/2009 (H1N1) LIVE(ATTENUATED) ANTIGEN\INFLUENZA A VIRUS A/TEXAS/50/2
     Indication: Prophylaxis
     Dosage: 0.2ML PREFILLED, SINGLE-USE GLASS SPRAYER
     Route: 061
  130. FLUMIST QUADRIVALENT [Suspect]
     Active Substance: INFLUENZA A VIRUS A/CALIFORNIA/7/2009 (H1N1) LIVE(ATTENUATED) ANTIGEN\INFLUENZA A VIRUS A/TEXAS/50/2
     Route: 061
  131. FLUMIST QUADRIVALENT [Suspect]
     Active Substance: INFLUENZA A VIRUS A/CALIFORNIA/7/2009 (H1N1) LIVE(ATTENUATED) ANTIGEN\INFLUENZA A VIRUS A/TEXAS/50/2
     Dosage: INTRA-NASAL
     Route: 065
  132. FLUMIST QUADRIVALENT [Suspect]
     Active Substance: INFLUENZA A VIRUS A/CALIFORNIA/7/2009 (H1N1) LIVE(ATTENUATED) ANTIGEN\INFLUENZA A VIRUS A/TEXAS/50/2
     Route: 065
  133. MORNIFLUMATE [Suspect]
     Active Substance: MORNIFLUMATE
     Indication: Product used for unknown indication
     Route: 065
  134. MORNIFLUMATE [Suspect]
     Active Substance: MORNIFLUMATE
     Route: 065
  135. MORNIFLUMATE [Suspect]
     Active Substance: MORNIFLUMATE
     Route: 065
  136. AMLODIPINE [Suspect]
     Active Substance: AMLODIPINE BESYLATE
     Indication: Product used for unknown indication
     Dosage: AMLODIPINE
     Route: 065
  137. AMLODIPINE [Suspect]
     Active Substance: AMLODIPINE BESYLATE
     Dosage: AMLODIPINE MALEATE
     Route: 065
  138. AMLODIPINE [Suspect]
     Active Substance: AMLODIPINE BESYLATE
     Dosage: AMLODIPINE MALEATE
     Route: 065
  139. AMLODIPINE [Suspect]
     Active Substance: AMLODIPINE BESYLATE
     Dosage: AMLODIPINE MESYLATE
     Route: 065
  140. AMLODIPINE [Suspect]
     Active Substance: AMLODIPINE BESYLATE
     Dosage: AMLODIPINE BESYLATE
     Route: 065
  141. AMLODIPINE [Suspect]
     Active Substance: AMLODIPINE BESYLATE
     Dosage: AMLODIPINE MALEATE
     Route: 048
  142. FINASTERIDE\TAMSULOSIN [Suspect]
     Active Substance: FINASTERIDE\TAMSULOSIN
     Indication: Product used for unknown indication
     Route: 065
  143. LEVOFLOXACIN [Suspect]
     Active Substance: LEVOFLOXACIN
     Indication: Product used for unknown indication
     Dosage: SINGLE USE AMPOULES?SOLUTION INHALATION
     Route: 065
  144. LEVOFLOXACIN [Suspect]
     Active Substance: LEVOFLOXACIN
     Dosage: 100MG/ML.2.4ML SINGLE USE?AMPOULE?SOLUTION INHALATION
     Route: 065
  145. ACLIDINIUM BROMIDE\FORMOTEROL FUMARATE [Suspect]
     Active Substance: ACLIDINIUM BROMIDE\FORMOTEROL FUMARATE
     Indication: Asthma
     Route: 055
  146. ACLIDINIUM BROMIDE\FORMOTEROL FUMARATE [Suspect]
     Active Substance: ACLIDINIUM BROMIDE\FORMOTEROL FUMARATE
     Route: 055
  147. ACLIDINIUM BROMIDE\FORMOTEROL FUMARATE [Suspect]
     Active Substance: ACLIDINIUM BROMIDE\FORMOTEROL FUMARATE
     Route: 055
  148. ACLIDINIUM BROMIDE\FORMOTEROL FUMARATE [Suspect]
     Active Substance: ACLIDINIUM BROMIDE\FORMOTEROL FUMARATE
     Route: 065
  149. ACLIDINIUM BROMIDE\FORMOTEROL FUMARATE [Suspect]
     Active Substance: ACLIDINIUM BROMIDE\FORMOTEROL FUMARATE
     Route: 048
  150. PNEUMOCOCCAL 7-VALENT CONJUGATE VACCINE (DIPHTHERIA CRM197 PROTEIN) [Suspect]
     Active Substance: PNEUMOCOCCAL 7-VALENT CONJUGATE VACCINE (DIPHTHERIA CRM197 PROTEIN)
     Indication: Prophylaxis
     Route: 065
  151. PNEUMOCOCCAL 13-VALENT CONJUGATE VACCINE [Suspect]
     Active Substance: PNEUMOCOCCAL 13-VALENT CONJUGATE VACCINE
     Indication: Prophylaxis
     Route: 065
  152. PNEUMOCOCCAL 13-VALENT CONJUGATE VACCINE [Suspect]
     Active Substance: PNEUMOCOCCAL 13-VALENT CONJUGATE VACCINE
     Indication: Immunisation
  153. PREVNAR 13 [Suspect]
     Active Substance: STREPTOCOCCUS PNEUMONIAE TYPE 1 CAPSULAR POLYSACCHARIDE DIPHTHERIA CRM197 PROTEIN CONJUGATE ANTIGEN\
     Indication: Prophylaxis
     Route: 065
  154. PREVNAR 13 [Suspect]
     Active Substance: STREPTOCOCCUS PNEUMONIAE TYPE 1 CAPSULAR POLYSACCHARIDE DIPHTHERIA CRM197 PROTEIN CONJUGATE ANTIGEN\
     Indication: Immunisation
     Route: 030
  155. PREVNAR 13 [Suspect]
     Active Substance: STREPTOCOCCUS PNEUMONIAE TYPE 1 CAPSULAR POLYSACCHARIDE DIPHTHERIA CRM197 PROTEIN CONJUGATE ANTIGEN\
     Route: 065
  156. PREVNAR 13 [Suspect]
     Active Substance: STREPTOCOCCUS PNEUMONIAE TYPE 1 CAPSULAR POLYSACCHARIDE DIPHTHERIA CRM197 PROTEIN CONJUGATE ANTIGEN\
     Route: 030
  157. BUDESONIDE [Suspect]
     Active Substance: BUDESONIDE
     Indication: Asthma
     Dosage: DELAYED AND EXTENDED-RELEASE TABLET
     Route: 065
  158. BUDESONIDE [Suspect]
     Active Substance: BUDESONIDE
     Route: 065
  159. TAMSULOSIN [Suspect]
     Active Substance: TAMSULOSIN
     Indication: Product used for unknown indication
     Dosage: TAMSULOSIN
     Route: 065
  160. TAMSULOSIN [Suspect]
     Active Substance: TAMSULOSIN
     Dosage: TAMSULOSIN HYDROCHLORIDE
     Route: 065
  161. TAMSULOSIN [Suspect]
     Active Substance: TAMSULOSIN
     Dosage: TAMSULOSIN HYDROCHLORIDE
     Route: 065
  162. RAMIPRIL [Suspect]
     Active Substance: RAMIPRIL
     Indication: Asthma
     Route: 065
  163. RAMIPRIL [Suspect]
     Active Substance: RAMIPRIL
     Indication: Prophylaxis
     Route: 048
  164. ALBUTEROL SULFATE [Suspect]
     Active Substance: ALBUTEROL SULFATE
     Indication: Asthma
     Route: 065
  165. ALBUTEROL SULFATE [Suspect]
     Active Substance: ALBUTEROL SULFATE
     Indication: Prophylaxis
  166. TADALAFIL [Suspect]
     Active Substance: TADALAFIL
     Indication: Product used for unknown indication
     Route: 065
  167. ASPIRIN [Suspect]
     Active Substance: ASPIRIN
     Indication: Product used for unknown indication
     Dosage: NOT SPECIFIED
     Route: 065
  168. AZITHROMYCIN ANHYDROUS [Suspect]
     Active Substance: AZITHROMYCIN ANHYDROUS
     Indication: Product used for unknown indication
     Route: 065
  169. MESALAMINE [Suspect]
     Active Substance: MESALAMINE
     Indication: Product used for unknown indication
     Dosage: TABLET (DELAYED AND EXTENDED RELEASE)
     Route: 065
  170. FINASTERIDE [Suspect]
     Active Substance: FINASTERIDE
     Indication: Product used for unknown indication
     Route: 065

REACTIONS (23)
  - Full blood count abnormal [Unknown]
  - Bronchiectasis [Unknown]
  - Malignant melanoma in situ [Unknown]
  - Benign prostatic hyperplasia [Unknown]
  - Breath sounds abnormal [Unknown]
  - Coronary artery disease [Unknown]
  - Dyspnoea exertional [Unknown]
  - Congenital hiatus hernia [Unknown]
  - Gastrooesophageal reflux disease [Unknown]
  - Hypercholesterolaemia [Unknown]
  - Joint injury [Unknown]
  - Loss of personal independence in daily activities [Unknown]
  - Micturition urgency [Unknown]
  - Obstructive airways disorder [Unknown]
  - Chronic obstructive pulmonary disease [Unknown]
  - Productive cough [Unknown]
  - Asthma [Unknown]
  - Dyspnoea [Unknown]
  - Transient ischaemic attack [Unknown]
  - Wheezing [Unknown]
  - Hypertension [Unknown]
  - Therapeutic product effect incomplete [Unknown]
  - Off label use [Unknown]
